FAERS Safety Report 11921928 (Version 1)
Quarter: 2016Q1

REPORT INFORMATION
  Report Type: Not Available
  Country: US (occurrence: US)
  Receive Date: 20160115
  Receipt Date: 20160115
  Transmission Date: 20160526
  Serious: Yes (Other)
  Sender: FDA-Public Use
  Company Number: US-ANIPHARMA-2016-US-000103

PATIENT
  Sex: Male

DRUGS (6)
  1. TOPIRAMATE. [Suspect]
     Active Substance: TOPIRAMATE
     Route: 015
  2. PHENYTOIN SODIUM (NON-SPECIFIC) [Suspect]
     Active Substance: PHENYTOIN SODIUM
     Route: 015
  3. LEVETIRACETAM. [Suspect]
     Active Substance: LEVETIRACETAM
     Route: 015
  4. PROPOFOL. [Suspect]
     Active Substance: PROPOFOL
     Route: 015
  5. CLOBAZAM [Suspect]
     Active Substance: CLOBAZAM
     Route: 015
  6. MIDAZOLAM [Suspect]
     Active Substance: MIDAZOLAM\MIDAZOLAM HYDROCHLORIDE
     Route: 015

REACTIONS (4)
  - Withdrawal syndrome [Unknown]
  - Neonatal respiratory depression [Unknown]
  - Neuromyopathy [Unknown]
  - Exposure during pregnancy [Unknown]
